FAERS Safety Report 17040844 (Version 3)
Quarter: 2019Q4

REPORT INFORMATION
  Report Type: Spontaneous
  Country: CZ (occurrence: CZ)
  Receive Date: 20191118
  Receipt Date: 20191210
  Transmission Date: 20200122
  Serious: Yes (Hospitalization)
  Sender: FDA-Public Use
  Company Number: CZ-ROCHE-2475932

PATIENT
  Age: 62 Year
  Sex: Male
  Weight: 90 kg

DRUGS (8)
  1. ZELBORAF [Suspect]
     Active Substance: VEMURAFENIB
     Indication: METASTATIC MALIGNANT MELANOMA
     Route: 048
     Dates: start: 20190207, end: 201908
  2. ZELBORAF [Suspect]
     Active Substance: VEMURAFENIB
     Route: 048
     Dates: start: 201908, end: 20190913
  3. COTELLIC [Suspect]
     Active Substance: COBIMETINIB
     Dosage: DAY 1-21 IN 28-DAYS CYCLE
     Route: 048
     Dates: start: 201908, end: 20190913
  4. COTELLIC [Suspect]
     Active Substance: COBIMETINIB
     Dosage: DAY 1-21 IN 28-DAYS CYCLE
     Route: 048
     Dates: start: 20190920, end: 20190930
  5. ZELBORAF [Suspect]
     Active Substance: VEMURAFENIB
     Route: 048
     Dates: start: 20190920, end: 20190930
  6. ZELBORAF [Suspect]
     Active Substance: VEMURAFENIB
     Route: 048
     Dates: start: 201910, end: 20191031
  7. COTELLIC [Suspect]
     Active Substance: COBIMETINIB
     Indication: METASTATIC MALIGNANT MELANOMA
     Dosage: DAY 1-21 IN 28-DAYS CYCLE
     Route: 048
     Dates: start: 20190207, end: 201908
  8. COTELLIC [Suspect]
     Active Substance: COBIMETINIB
     Dosage: DAY 1-21 IN 28-DAYS CYCLE
     Route: 048
     Dates: start: 201910, end: 20191031

REACTIONS (6)
  - Gamma-glutamyltransferase increased [Recovering/Resolving]
  - Cholangitis [Recovering/Resolving]
  - Rash [Recovered/Resolved]
  - Fatigue [Unknown]
  - Malaise [Unknown]
  - Blood alkaline phosphatase increased [Recovering/Resolving]

NARRATIVE: CASE EVENT DATE: 20190221
